FAERS Safety Report 13665701 (Version 1)
Quarter: 2017Q2

REPORT INFORMATION
  Report Type: Spontaneous
  Country: US (occurrence: US)
  Receive Date: 20170619
  Receipt Date: 20170619
  Transmission Date: 20170830
  Serious: Yes (Hospitalization, Other)
  Sender: FDA-Public Use
  Company Number: US-IMPAX LABORATORIES, INC-2017-IPXL-01797

PATIENT
  Age: 65 Year
  Sex: Female

DRUGS (3)
  1. METHYLPREDNISOLONE. [Concomitant]
     Active Substance: METHYLPREDNISOLONE
     Indication: MYASTHENIA GRAVIS
     Dosage: 125 MG, DAILY
     Route: 042
  2. PYRIDOSTIGMINE BROMIDE. [Suspect]
     Active Substance: PYRIDOSTIGMINE BROMIDE
     Dosage: 30 MG, EVERY 8 HRS
     Route: 048
  3. PYRIDOSTIGMINE BROMIDE. [Suspect]
     Active Substance: PYRIDOSTIGMINE BROMIDE
     Indication: MYASTHENIA GRAVIS
     Dosage: 60 MG, EVERY 8HR
     Route: 048

REACTIONS (3)
  - Bradycardia [Recovered/Resolved]
  - Sinoatrial block [Recovered/Resolved]
  - Cardiac arrest [Recovered/Resolved]
